FAERS Safety Report 10363868 (Version 1)
Quarter: 2014Q3

REPORT INFORMATION
  Report Type: Spontaneous
  Country: IT (occurrence: None)
  Receive Date: 20140801
  Receipt Date: 20140801
  Transmission Date: 20150326
  Serious: Yes (Other)
  Sender: FDA-Public Use
  Company Number: AUR-APL-2014-07874

PATIENT
  Age: 90 Year
  Sex: Female

DRUGS (8)
  1. URBASON/00049601/(METHYLPREDNISOLONE) TABLET [Concomitant]
  2. ESOMEPRAZOLE SODIUM ( ESOMEPRAZOLE SODIUM) [Concomitant]
  3. RAMIPRIL. [Suspect]
     Active Substance: RAMIPRIL
     Indication: HYPERTENSION
     Route: 048
     Dates: start: 20140101, end: 20140623
  4. TRITTICO ( TRAZODONE HYDROCHLORIDE) FILM COATED TABLET [Concomitant]
  5. TAVOR/00273201/LORAZEPAM [Concomitant]
  6. LASIX [Suspect]
     Active Substance: FUROSEMIDE
     Indication: HYPERTENSION
     Dosage: 1 DF, DAILY 25 MG, ORAL
     Route: 048
     Dates: start: 20140101, end: 20140623
  7. PLAVIX ( CLOPIDOGREL BISULFATE) [Concomitant]
  8. CETRIZINE ( CETIRIZINE HYDROCHLORIDE) [Concomitant]

REACTIONS (3)
  - Hyponatraemia [None]
  - Heat stroke [None]
  - Syncope [None]

NARRATIVE: CASE EVENT DATE: 20140623
